FAERS Safety Report 20633490 (Version 2)
Quarter: 2022Q2

REPORT INFORMATION
  Report Type: Spontaneous
  Country: AR (occurrence: AR)
  Receive Date: 20220324
  Receipt Date: 20220407
  Transmission Date: 20220721
  Serious: Yes (Other)
  Sender: FDA-Public Use
  Company Number: AR-NOVARTISPH-NVSC2022AR066492

PATIENT
  Age: 42 Year
  Sex: Male

DRUGS (2)
  1. ADALIMUMAB [Suspect]
     Active Substance: ADALIMUMAB
     Indication: Hidradenitis
     Dosage: UNK (IRREGULAR TREATMENT)
     Route: 065
     Dates: end: 2018
  2. ADALIMUMAB [Suspect]
     Active Substance: ADALIMUMAB
     Indication: Crohn^s disease
     Dosage: 80 MG, Q2W (EVERY 14 DAYS) (REGULAR DOSE)
     Route: 065

REACTIONS (2)
  - IgA nephropathy [Recovering/Resolving]
  - Inappropriate schedule of product administration [Unknown]
